FAERS Safety Report 15677475 (Version 2)
Quarter: 2018Q4

REPORT INFORMATION
  Report Type: Spontaneous
  Country: BR (occurrence: BR)
  Receive Date: 20181130
  Receipt Date: 20181203
  Transmission Date: 20190205
  Serious: Yes (Other)
  Sender: FDA-Public Use
  Company Number: BR-SAKK-2018SA269876AA

PATIENT
  Sex: Female
  Weight: 85 kg

DRUGS (2)
  1. AAS [Concomitant]
     Active Substance: ASPIRIN
     Route: 065
  2. CLEXANE [Suspect]
     Active Substance: ENOXAPARIN SODIUM
     Indication: PRODUCT USED FOR UNKNOWN INDICATION
     Dosage: 40 MG, QD
     Route: 065

REACTIONS (6)
  - Foetal malpresentation [Unknown]
  - Placental disorder [Unknown]
  - Umbilical cord abnormality [Unknown]
  - Exposure during pregnancy [Unknown]
  - Underdose [Unknown]
  - Caesarean section [Unknown]

NARRATIVE: CASE EVENT DATE: 20181024
